FAERS Safety Report 6741316-3 (Version None)
Quarter: 2010Q2

REPORT INFORMATION
  Report Type: 
  Country: None (occurrence: None)
  Receive Date: 20100526
  Receipt Date: 20100514
  Transmission Date: 20101027
  Serious: Yes (Other)
  Sender: FDA-Public Use
  Company Number: BR-PFIZER INC-2010061319

PATIENT
  Age: 69 Year
  Sex: Male
  Weight: 85 kg

DRUGS (1)
  1. VIAGRA [Suspect]
     Indication: ERECTILE DYSFUNCTION
     Dosage: 50 MG, AS NEEDED (ONE HOUR PRIOR TO THE SEXUAL INTERCOURSE)
     Route: 048

REACTIONS (2)
  - DRUG INEFFECTIVE [None]
  - PROSTATIC OPERATION [None]
